FAERS Safety Report 10882941 (Version 1)
Quarter: 2015Q1

REPORT INFORMATION
  Report Type: Spontaneous
  Country: ZA (occurrence: ZA)
  Receive Date: 20150303
  Receipt Date: 20150303
  Transmission Date: 20150721
  Serious: Yes (Other)
  Sender: FDA-Public Use
  Company Number: ZA-ELI_LILLY_AND_COMPANY-ZA201502007921

PATIENT
  Age: 37 Year
  Sex: Male

DRUGS (4)
  1. ZYPREXA [Suspect]
     Active Substance: OLANZAPINE
     Indication: DEPRESSION
  2. ZYPREXA [Suspect]
     Active Substance: OLANZAPINE
     Indication: ANGER
  3. ZYPREXA [Suspect]
     Active Substance: OLANZAPINE
     Indication: ANXIETY
  4. ZYPREXA [Suspect]
     Active Substance: OLANZAPINE
     Indication: MOOD ALTERED
     Dosage: 10 MG, UNK
     Route: 065
     Dates: start: 2001, end: 20150108

REACTIONS (17)
  - Hallucination [Unknown]
  - Insomnia [Recovered/Resolved]
  - Skin discolouration [Unknown]
  - Eye movement disorder [Unknown]
  - Road traffic accident [Unknown]
  - Tachyphrenia [Unknown]
  - Fat tissue increased [Unknown]
  - Somnolence [Recovered/Resolved]
  - Suicidal ideation [Recovered/Resolved]
  - Abasia [Recovered/Resolved]
  - Abnormal behaviour [Recovered/Resolved]
  - Off label use [Recovered/Resolved]
  - Muscular weakness [Unknown]
  - Dyspepsia [Unknown]
  - Mutism [Recovered/Resolved]
  - Somnambulism [Unknown]
  - Urinary incontinence [Unknown]
